FAERS Safety Report 5533929-1 (Version None)
Quarter: 2007Q4

REPORT INFORMATION
  Report Type: 
  Country: None (occurrence: None)
  Receive Date: 20071129
  Receipt Date: 20071113
  Transmission Date: 20080405
  Serious: Yes (Other)
  Sender: FDA-Public Use
  Company Number: 2007JP005205

PATIENT
  Age: 50 Year
  Sex: Female
  Weight: 45.4 kg

DRUGS (4)
  1. VESICARE [Suspect]
     Indication: HYPERTONIC BLADDER
     Dosage: 5 MG, UID/QD, ORAL
     Route: 048
     Dates: start: 20070426, end: 20070628
  2. BIO THREE TABLET [Concomitant]
  3. RIZE (CLOTIAZEPAM) [Concomitant]
  4. VOLTIME (BIODIASTASE 2000) [Concomitant]

REACTIONS (4)
  - BLOOD UREA DECREASED [None]
  - CONDITION AGGRAVATED [None]
  - GASTRIC CANCER [None]
  - MALIGNANT NEOPLASM PROGRESSION [None]
